FAERS Safety Report 11168393 (Version 1)
Quarter: 2015Q2

REPORT INFORMATION
  Report Type: Spontaneous
  Country: US (occurrence: None)
  Receive Date: 20150515
  Receipt Date: 20150515
  Transmission Date: 20150821
  Serious: Yes (Other)
  Sender: FDA-Public Use
  Company Number: 2014008843

PATIENT
  Age: 54 Year
  Sex: Female

DRUGS (1)
  1. CIMZIA [Suspect]
     Active Substance: CERTOLIZUMAB PEGOL
     Dosage: EV 4 WEEKS
     Dates: start: 201407, end: 20140731

REACTIONS (2)
  - Seizure [None]
  - Drug ineffective [None]

NARRATIVE: CASE EVENT DATE: 201407
